FAERS Safety Report 23945475 (Version 1)
Quarter: 2024Q2

REPORT INFORMATION
  Report Type: Spontaneous
  Country: US (occurrence: None)
  Receive Date: 20240605
  Receipt Date: 20240605
  Transmission Date: 20240716
  Serious: Yes (Disabling, Other)
  Sender: FDA-Public Use
  Company Number: None

PATIENT
  Age: 77 Year
  Sex: Female
  Weight: 76.5 kg

DRUGS (1)
  1. NEOMYCIN AND POLYMYXIN B SULFATES AND HYDROCORTISONE [Suspect]
     Active Substance: HYDROCORTISONE\NEOMYCIN SULFATE\POLYMYXIN B SULFATE
     Indication: Ear infection
     Dosage: 4 DROPS EVERY 4 HOURS  AURICULAR (OTIC) ?
     Route: 001
     Dates: start: 20240517, end: 20240528

REACTIONS (13)
  - Pruritus [None]
  - Ear discomfort [None]
  - Middle ear effusion [None]
  - Hypoacusis [None]
  - Sinus headache [None]
  - Photophobia [None]
  - Thermal burns of eye [None]
  - Eye swelling [None]
  - Eye irritation [None]
  - Vision blurred [None]
  - Urticaria [None]
  - Skin disorder [None]
  - Body temperature decreased [None]

NARRATIVE: CASE EVENT DATE: 20240517
